FAERS Safety Report 7951571-X (Version None)
Quarter: 2011Q4

REPORT INFORMATION
  Report Type: 
  Country: None (occurrence: None)
  Receive Date: 20111201
  Receipt Date: 20111124
  Transmission Date: 20120403
  Serious: Yes (Death, Hospitalization)
  Sender: FDA-Public Use
  Company Number: DE-CELGENEUS-062-50794-11093367

PATIENT
  Age: 79 Year
  Sex: Male
  Weight: 78 kg

DRUGS (10)
  1. IDARUBICIN HCL [Suspect]
     Dosage: 24 MILLIGRAM
     Route: 041
     Dates: start: 20110905, end: 20110917
  2. POSACONAZOLE [Concomitant]
     Dosage: 15 MILLIGRAM
     Route: 065
     Dates: start: 20110923, end: 20110926
  3. PENICILLIN [Concomitant]
     Indication: ANTIBIOTIC THERAPY
     Dosage: 12 MILLIGRAM
     Route: 065
     Dates: start: 20110923, end: 20110926
  4. VIDAZA [Suspect]
     Dosage: 200 MILLIGRAM
     Route: 041
     Dates: start: 20110915, end: 20110919
  5. DIGOXIN [Concomitant]
     Indication: ARRHYTHMIA
     Dosage: .2 MILLIGRAM
     Route: 048
     Dates: start: 20110909, end: 20111121
  6. ETOPOSIDE [Suspect]
     Dosage: 207 MILLIGRAM
     Route: 041
     Dates: start: 20110915, end: 20110917
  7. METOPROLOL SUCCINATE [Concomitant]
     Indication: HYPERTENSION
     Dosage: 47.5 MILLIGRAM
     Route: 048
     Dates: start: 20111008, end: 20111121
  8. LEVOTHYROXINE SODIUM [Concomitant]
     Indication: THYROID HORMONE REPLACEMENT THERAPY
     Dosage: 50 MILLIGRAM
     Route: 048
     Dates: start: 20110909, end: 20111121
  9. TAZOBACTAM [Concomitant]
     Indication: ANTIBIOTIC THERAPY
     Dosage: 1.5 MILLIGRAM
     Route: 065
     Dates: start: 20110323, end: 20110801
  10. PROPAFENONE HCL [Concomitant]
     Indication: ARRHYTHMIA
     Dosage: 300 MILLIGRAM
     Route: 048
     Dates: start: 20110905, end: 20111121

REACTIONS (2)
  - SEPSIS [None]
  - NEUTROPENIC SEPSIS [None]
